FAERS Safety Report 5339385-0 (Version None)
Quarter: 2007Q2

REPORT INFORMATION
  Report Type: 
  Country: None (occurrence: None)
  Receive Date: 20070322
  Receipt Date: 20061127
  Transmission Date: 20071010
  Serious: Yes (Other)
  Sender: FDA-Public Use
  Company Number: 200613702BCC

PATIENT
  Age: 67 Year
  Sex: Female
  Weight: 67.586 kg

DRUGS (6)
  1. ALEVE [Suspect]
     Indication: BACK PAIN
     Dosage: SEE IMAGE; ORAL
     Route: 048
     Dates: start: 20060827
  2. ALEVE [Suspect]
     Indication: PAIN
     Dosage: SEE IMAGE; ORAL
     Route: 048
     Dates: start: 20060827
  3. ALEVE [Suspect]
     Indication: BACK PAIN
     Dosage: SEE IMAGE; ORAL
     Route: 048
     Dates: start: 20060828
  4. ALEVE [Suspect]
     Indication: PAIN
     Dosage: SEE IMAGE; ORAL
     Route: 048
     Dates: start: 20060828
  5. ASPIRIN [Concomitant]
  6. TRIAMTERENE AND HYDROCHLOROTHIAZIDE [Concomitant]

REACTIONS (6)
  - ANAPHYLACTIC REACTION [None]
  - DYSPNOEA [None]
  - OEDEMA PERIPHERAL [None]
  - PRURITUS [None]
  - RASH MACULAR [None]
  - URTICARIA [None]
